FAERS Safety Report 24709801 (Version 1)
Quarter: 2024Q4

REPORT INFORMATION
  Report Type: Spontaneous
  Country: US (occurrence: US)
  Receive Date: 20241209
  Receipt Date: 20241209
  Transmission Date: 20250114
  Serious: Yes (Other)
  Sender: HIKMA
  Company Number: US-MLMSERVICE-20241119-PI263179-00218-1

PATIENT
  Age: 41 Year
  Sex: Female

DRUGS (11)
  1. METHOTREXATE [Suspect]
     Active Substance: METHOTREXATE
     Dosage: UNK40 MG OF METHOTREXATE WAS PLACED INTO THE 500ML BSS POSTERIOR SEGMENT INFUSION BOTTLE
     Route: 065
  2. METHOTREXATE [Suspect]
     Active Substance: METHOTREXATE
     Indication: Proliferative vitreoretinopathy
     Dosage: INTRAVITREAL 200 ?G/0.05ML METHOTREXATE EVERY TWO WEEKS FOR A TOTAL OF FIVE INJECTIONS
     Route: 031
  3. METHOTREXATE [Suspect]
     Active Substance: METHOTREXATE
     Dosage: INTRAVITREAL 200 ?G/0.05ML, MONTHLY INJECTIONS
     Route: 031
  4. BRIMONIDINE TARTRATE;TIMOLOL [Concomitant]
     Indication: Aniridia
     Dosage: UNK UNK, Q12H
     Route: 065
  5. CYCLOSPORINE [Concomitant]
     Active Substance: CYCLOSPORINE
     Indication: Aniridia
     Dosage: UNK, Q12H
     Route: 065
  6. DIFLUPREDNATE [Concomitant]
     Active Substance: DIFLUPREDNATE
     Indication: Aniridia
     Dosage: UNK UNK, Q4H
     Route: 065
  7. DIFLUPREDNATE [Concomitant]
     Active Substance: DIFLUPREDNATE
     Dosage: DIFLUPREDNATE TAPER WAS INITIATED AT THIS VISIT
     Route: 065
  8. MYCOPHENOLIC ACID [Concomitant]
     Active Substance: MYCOPHENOLIC ACID
     Indication: Product used for unknown indication
     Dosage: UNKNOWN
     Route: 065
  9. PREDNISONE [Concomitant]
     Active Substance: PREDNISONE
     Indication: Product used for unknown indication
     Dosage: TAPER
     Route: 048
  10. TACROLIMUS [Concomitant]
     Active Substance: TACROLIMUS
     Indication: Product used for unknown indication
     Dosage: UNKNOWN
     Route: 065
  11. VALGANCICLOVIR [Concomitant]
     Active Substance: VALGANCICLOVIR
     Indication: Product used for unknown indication
     Dosage: UNKNOWN
     Route: 065

REACTIONS (2)
  - Punctate keratitis [Unknown]
  - Corneal epithelium defect [Recovered/Resolved]
